FAERS Safety Report 5670923-4 (Version None)
Quarter: 2008Q1

REPORT INFORMATION
  Report Type: 
  Country: None (occurrence: None)
  Receive Date: 20080318
  Receipt Date: 20080307
  Transmission Date: 20080703
  Serious: Yes (Hospitalization)
  Sender: FDA-Public Use
  Company Number: B0512430A

PATIENT
  Age: 96 Year
  Sex: Male

DRUGS (5)
  1. ARIXTRA [Suspect]
     Indication: PROPHYLAXIS
     Dosage: 6.25MG PER DAY
     Route: 058
     Dates: start: 20070326, end: 20070425
  2. SINTROM [Concomitant]
  3. ASPEGIC 1000 [Concomitant]
  4. AMARYL [Concomitant]
     Dosage: 1MG PER DAY
     Dates: start: 20070326
  5. TRIATEC [Concomitant]
     Dosage: 1.25MG PER DAY
     Dates: start: 20070326

REACTIONS (2)
  - CATHETER RELATED COMPLICATION [None]
  - HAEMATURIA [None]
